FAERS Safety Report 7552936-0 (Version None)
Quarter: 2011Q2

REPORT INFORMATION
  Report Type: 
  Country: None (occurrence: None)
  Receive Date: 20110616
  Receipt Date: 20110121
  Transmission Date: 20111010
  Serious: No
  Sender: FDA-Public Use
  Company Number: US-ASTRAZENECA-2011SE04065

PATIENT
  Sex: Female

DRUGS (1)
  1. FASLODEX [Suspect]
     Indication: LUNG NEOPLASM MALIGNANT
     Route: 030
     Dates: start: 20100101, end: 20100101

REACTIONS (1)
  - INJECTION SITE PRURITUS [None]
